FAERS Safety Report 5924248-X (Version None)
Quarter: 2008Q3

REPORT INFORMATION
  Report Type: 
  Country: None (occurrence: None)
  Receive Date: 20080909
  Receipt Date: 20080415
  Transmission Date: 20090109
  Serious: Yes (Hospitalization)
  Sender: FDA-Public Use
  Company Number: 163-20785-08020031

PATIENT
  Age: 71 Year
  Sex: Female
  Weight: 77.7 kg

DRUGS (29)
  1. THALOMID [Suspect]
     Indication: MULTIPLE MYELOMA
     Dosage: 200 MG, ORAL ; 100 MG, AT BEDTIME, ORAL
     Route: 048
     Dates: end: 20070623
  2. THALOMID [Suspect]
     Indication: MULTIPLE MYELOMA
     Dosage: 200 MG, ORAL ; 100 MG, AT BEDTIME, ORAL
     Route: 048
     Dates: start: 20050710, end: 20070917
  3. DEXAMETHASONE TAB [Suspect]
     Indication: MULTIPLE MYELOMA
     Dosage: 40 MG, ORAL ; 12 MG, ORAL
     Route: 048
     Dates: end: 20070613
  4. DEXAMETHASONE TAB [Suspect]
     Indication: MULTIPLE MYELOMA
     Dosage: 40 MG, ORAL ; 12 MG, ORAL
     Route: 048
     Dates: start: 20050710, end: 20071003
  5. VELCADE [Suspect]
     Indication: MULTIPLE MYELOMA
     Dosage: 1 MG/M2, INTRAVENOUS ; 0.8 MG/M2, 1, 4, 8, 11, INTRAVENOUS
     Route: 042
     Dates: start: 20050709, end: 20071001
  6. VELCADE [Suspect]
     Indication: MULTIPLE MYELOMA
     Dosage: 1 MG/M2, INTRAVENOUS ; 0.8 MG/M2, 1, 4, 8, 11, INTRAVENOUS
     Route: 042
     Dates: end: 20071001
  7. ZANTAC (RANITIDINE HYDROCHLORIDE) (CAPSULES) [Concomitant]
  8. ACYCLOVIR (ACICLOVIR) (TABLETS) [Concomitant]
  9. LORAZEPAM (LORAZEPAM) (TABLETS) [Concomitant]
  10. MULTIPLE VITAMIN (MULTIVITAMIN ^LAPPE^) (TABLETS) [Concomitant]
  11. MAGNESIUM (MAGNESIUM) (250 MILLIGRAM, TABLETS) [Concomitant]
  12. VITEYE (TABLETS) [Concomitant]
  13. POTASSIUM CHLORIDE [Concomitant]
  14. SYNTHROID (LEVOTHYROXINE SODIUM) (TABLETS) [Concomitant]
  15. KEPPRA [Concomitant]
  16. ASCORBIC ACID (ASCORBIC ACID) (TABLETS) [Concomitant]
  17. PENTAMIDINE ISETHIONATE (PENTAMIDINE ISETHIONATE) (INJECTION) [Concomitant]
  18. IMMUNE GLOBULIN (IMMUNOGLOBULIN) [Concomitant]
  19. LEVAQUIN [Concomitant]
  20. LOVENOX [Concomitant]
  21. MYCELEX [Concomitant]
  22. ZOLOFT [Concomitant]
  23. VITAMIN B12 (CYANOCOBALAMIN) (1000 MICROGRAM) [Concomitant]
  24. ALLERGY (CHLORPHENAMINE) (TABLETS) [Concomitant]
  25. PROMETHAZINE HCL (PROMETHAZINE) (TABLETS) [Concomitant]
  26. TOPROL XL (METOPROLOL SUCCINATE) (TABLETS) [Concomitant]
  27. FENTANYL (FENTANYL) (POULTICE OR PATCH) [Concomitant]
  28. LYRICA (PREGABALIN) (CAPSULES) [Concomitant]
  29. AMBIEN (ZOLPIDEM TARTRATE) (5 MILLIGRAM, TABLETS) [Concomitant]

REACTIONS (1)
  - NEUROPATHY PERIPHERAL [None]
